FAERS Safety Report 5192113-4 (Version None)
Quarter: 2006Q4

REPORT INFORMATION
  Report Type: 
  Country: None (occurrence: None)
  Receive Date: 20061221
  Receipt Date: 20061221
  Transmission Date: 20070319
  Serious: Yes (Other)
  Sender: FDA-Public Use
  Company Number: None

PATIENT
  Sex: Male
  Weight: 71.2147 kg

DRUGS (4)
  1. ANGIOMAX [Suspect]
     Indication: ANTICOAGULANT THERAPY
     Dosage: 10.5 CC BOLUS /24.5 CC INFUSION
     Route: 040
     Dates: start: 20061218, end: 20061218
  2. ANGIOMAX [Suspect]
     Indication: PERCUTANEOUS CORONARY INTERVENTION
     Dosage: 10.5 CC BOLUS /24.5 CC INFUSION
     Route: 040
     Dates: start: 20061218, end: 20061218
  3. PLAVIX [Suspect]
     Indication: ANTIPLATELET THERAPY
     Dosage: 600/75 LOADING. MAIN PO
     Route: 048
     Dates: start: 20061218, end: 20061231
  4. PLAVIX [Suspect]
     Indication: PERCUTANEOUS CORONARY INTERVENTION
     Dosage: 600/75 LOADING. MAIN PO
     Route: 048
     Dates: start: 20061218, end: 20061231

REACTIONS (2)
  - MYOCARDIAL INFARCTION [None]
  - PROCEDURAL COMPLICATION [None]
